FAERS Safety Report 8955145 (Version 1)
Quarter: 2012Q4

REPORT INFORMATION
  Report Type: 
  Country: FR (occurrence: FR)
  Receive Date: 20121207
  Receipt Date: 20121207
  Transmission Date: 20130627
  Serious: Yes (Other)
  Sender: FDA-Public Use
  Company Number: FR-ASTRAZENECA-2012SE89930

PATIENT
  Age: 31228 Day
  Sex: Female

DRUGS (1)
  1. INEXIUM [Suspect]
     Indication: GASTROOESOPHAGEAL REFLUX DISEASE
     Route: 048
     Dates: start: 20120905, end: 20120918

REACTIONS (1)
  - Hepatocellular injury [Recovered/Resolved]
